FAERS Safety Report 14076068 (Version 1)
Quarter: 2017Q4

REPORT INFORMATION
  Report Type: Spontaneous
  Country: US (occurrence: US)
  Receive Date: 20171010
  Receipt Date: 20171010
  Transmission Date: 20180321
  Serious: No
  Sender: FDA-Public Use
  Company Number: US-MYLANLABS-2017M1013355

PATIENT
  Sex: Female
  Weight: 113.38 kg

DRUGS (2)
  1. CLOMIPRAMINE HYDROCHLORIDE CAPSULES, USP [Suspect]
     Active Substance: CLOMIPRAMINE HYDROCHLORIDE
     Indication: ANXIETY
  2. CLOMIPRAMINE HYDROCHLORIDE CAPSULES, USP [Suspect]
     Active Substance: CLOMIPRAMINE HYDROCHLORIDE
     Indication: OBSESSIVE-COMPULSIVE DISORDER
     Dosage: 75 MG, QD HS (3 CAPSULES)
     Route: 048
     Dates: end: 20170202

REACTIONS (1)
  - Sedation [Recovered/Resolved]
